FAERS Safety Report 4716413-4 (Version None)
Quarter: 2005Q3

REPORT INFORMATION
  Report Type: 
  Country: None (occurrence: None)
  Receive Date: 20050719
  Receipt Date: 20050701
  Transmission Date: 20060218
  Serious: Yes (Hospitalization)
  Sender: FDA-Public Use
  Company Number: US-BOEHRINGER INGELHEIM PHARMACEUTICALS, INC.-2005-BP-11238BP

PATIENT
  Sex: Male
  Weight: 53.98 kg

DRUGS (3)
  1. TIPRANAVIR / RITONAVIR CAPSULES [Suspect]
     Indication: HIV INFECTION
     Dosage: 1000 MG/400 MG
     Route: 048
     Dates: start: 20050613
  2. T-20 [Concomitant]
     Indication: HIV INFECTION
     Route: 058
     Dates: start: 20050613
  3. TRUVADA [Concomitant]
     Indication: HIV INFECTION
     Route: 048
     Dates: start: 20050613

REACTIONS (1)
  - CHEST PAIN [None]
